FAERS Safety Report 13169667 (Version 1)
Quarter: 2017Q1

REPORT INFORMATION
  Report Type: Spontaneous
  Country: US (occurrence: US)
  Receive Date: 20170131
  Receipt Date: 20170131
  Transmission Date: 20170428
  Serious: No
  Sender: FDA-Public Use
  Company Number: US-ASTRAZENECA-2017SE11396

PATIENT
  Age: 24958 Day
  Sex: Male
  Weight: 56.7 kg

DRUGS (6)
  1. INSULIN [Concomitant]
     Active Substance: INSULIN NOS
     Indication: DIABETES MELLITUS
     Route: 058
  2. TUDORZA PRESSAIR [Suspect]
     Active Substance: ACLIDINIUM BROMIDE
     Indication: CHRONIC OBSTRUCTIVE PULMONARY DISEASE
     Route: 055
     Dates: start: 2015
  3. KOREG [Concomitant]
     Active Substance: CARVEDILOL
     Indication: BLOOD PRESSURE ABNORMAL
     Route: 048
  4. PROAIR HFA [Concomitant]
     Active Substance: ALBUTEROL SULFATE
     Indication: CHRONIC OBSTRUCTIVE PULMONARY DISEASE
     Route: 055
     Dates: start: 2015
  5. SYMBICORT [Suspect]
     Active Substance: BUDESONIDE\FORMOTEROL FUMARATE DIHYDRATE
     Indication: CHRONIC OBSTRUCTIVE PULMONARY DISEASE
     Dosage: 160/4.5 MG TAKING 2 PUFFS TWICE A DAY
     Route: 055
     Dates: start: 2015
  6. IBUPROFEN. [Concomitant]
     Active Substance: IBUPROFEN
     Indication: HEADACHE

REACTIONS (4)
  - Gingival swelling [Unknown]
  - Pulmonary function test decreased [Unknown]
  - Drug dose omission [Unknown]
  - Device malfunction [Unknown]

NARRATIVE: CASE EVENT DATE: 20160531
